FAERS Safety Report 7271780-5 (Version None)
Quarter: 2011Q1

REPORT INFORMATION
  Report Type: 
  Country: None (occurrence: None)
  Receive Date: 20110126
  Receipt Date: 20110120
  Transmission Date: 20110831
  Serious: Yes (Other)
  Sender: FDA-Public Use
  Company Number: 2011SP002818

PATIENT
  Age: 21 Year
  Sex: Female

DRUGS (2)
  1. PROCHLORPERAZINE [Concomitant]
  2. IMPLANON [Suspect]
     Indication: PRODUCT USED FOR UNKNOWN INDICATION
     Dosage: 1 DF ; SC
     Route: 058
     Dates: start: 20100325

REACTIONS (3)
  - ABORTION SPONTANEOUS [None]
  - PREGNANCY [None]
  - DRUG EXPOSURE DURING PREGNANCY [None]
